FAERS Safety Report 7305054-0 (Version None)
Quarter: 2011Q1

REPORT INFORMATION
  Report Type: 
  Country: None (occurrence: None)
  Receive Date: 20110222
  Receipt Date: 20110214
  Transmission Date: 20110831
  Serious: Yes (Hospitalization)
  Sender: FDA-Public Use
  Company Number: US-ABBOTT-11P-163-0705563-00

PATIENT
  Weight: 49.94 kg

DRUGS (14)
  1. LOSARTAN POTASSIUM AND HYDROCHLOROTHIAZIDE [Concomitant]
     Indication: HYPERTENSION
  2. ZOLOFT [Concomitant]
     Indication: DEPRESSION
  3. UNKNOWN STOOL SOFTNER [Concomitant]
     Indication: GASTROINTESTINAL MOTILITY DISORDER
  4. LORTAB [Concomitant]
     Indication: PAIN
  5. SYNTHROID [Suspect]
     Indication: THYROIDECTOMY
     Dates: start: 19800101, end: 20101222
  6. REMERON [Concomitant]
     Indication: DEPRESSION
  7. MICRO-K [Concomitant]
     Indication: MINERAL SUPPLEMENTATION
  8. VALIUM [Concomitant]
     Indication: ANXIETY
  9. OSCAL [Concomitant]
     Indication: OSTEOPOROSIS
  10. MILK OF MAGNESIA TAB [Concomitant]
     Indication: GASTROINTESTINAL MOTILITY DISORDER
  11. SYNTHROID [Suspect]
     Dates: start: 20110212
  12. METOPROLOL [Concomitant]
     Indication: HYPERTENSION
  13. PEPCID [Concomitant]
     Indication: GASTROOESOPHAGEAL REFLUX DISEASE
  14. TYLENOL [Concomitant]
     Indication: PAIN

REACTIONS (13)
  - UPPER LIMB FRACTURE [None]
  - HYPOTHYROIDISM [None]
  - TEMPERATURE INTOLERANCE [None]
  - FATIGUE [None]
  - DRUG ADMINISTRATION ERROR [None]
  - HIP FRACTURE [None]
  - FALL [None]
  - HEART RATE IRREGULAR [None]
  - MENTAL DISORDER [None]
  - AGITATION [None]
  - DELUSIONAL DISORDER, UNSPECIFIED TYPE [None]
  - URINARY TRACT INFECTION [None]
  - DIZZINESS [None]
